FAERS Safety Report 15049399 (Version 1)
Quarter: 2018Q3

REPORT INFORMATION
  Report Type: Spontaneous
  Country: SK (occurrence: SK)
  Receive Date: 20180622
  Receipt Date: 20180622
  Transmission Date: 20181010
  Serious: Yes (Disabling)
  Sender: FDA-Public Use
  Company Number: SK-TEVA-2018-SK-912706

PATIENT
  Age: 62 Year
  Sex: Female

DRUGS (15)
  1. SIMVASTATIN. [Suspect]
     Active Substance: SIMVASTATIN
     Route: 065
  2. SIMVASTATIN / FENOFIBRATE [Suspect]
     Active Substance: FENOFIBRATE\SIMVASTATIN
     Route: 065
  3. FUROSEMIDE 250 MG [Concomitant]
     Active Substance: FUROSEMIDE
  4. ATORVASTATIN [Suspect]
     Active Substance: ATORVASTATIN
     Dosage: 80 MG DAILY
     Route: 065
  5. FENOFIBRATE 215 MG [Concomitant]
     Active Substance: FENOFIBRATE
     Dosage: 215 MILLIGRAM DAILY;
     Route: 065
     Dates: start: 2015
  6. IVABRADINE 5 MG [Concomitant]
     Active Substance: IVABRADINE
  7. CARVEDILOL 12,5 MG [Concomitant]
     Active Substance: CARVEDILOL
  8. EZETIMIBE. [Suspect]
     Active Substance: EZETIMIBE
     Route: 065
  9. ACETYLSALICYLIC ACID [Concomitant]
     Active Substance: ASPIRIN
  10. ROSUVASTATIN. [Suspect]
     Active Substance: ROSUVASTATIN
     Route: 065
  11. DIGOXIN. [Concomitant]
     Active Substance: DIGOXIN
  12. EZETIMIBE / ATORVASTATIN [Suspect]
     Active Substance: ATORVASTATIN\EZETIMIBE
     Route: 065
  13. COENZYM Q10 30 MG [Concomitant]
     Active Substance: UBIDECARENONE
  14. ATORVASTATIN [Suspect]
     Active Substance: ATORVASTATIN
     Dosage: 80 MG DAILY
     Route: 048
     Dates: start: 2015
  15. FENOFIBRATE 215 MG [Concomitant]
     Active Substance: FENOFIBRATE
     Route: 065

REACTIONS (4)
  - Immobile [Unknown]
  - Blood creatine phosphokinase increased [Unknown]
  - Drug intolerance [Unknown]
  - Myalgia [Unknown]

NARRATIVE: CASE EVENT DATE: 2015
